FAERS Safety Report 24262949 (Version 3)
Quarter: 2024Q3

REPORT INFORMATION
  Report Type: Report from Study
  Country: US (occurrence: US)
  Receive Date: 20240829
  Receipt Date: 20240906
  Transmission Date: 20241016
  Serious: No
  Sender: NOVARTIS
  Company Number: US-002147023-NVSC2024US174173

PATIENT
  Age: 40 Year
  Sex: Male

DRUGS (1)
  1. KESIMPTA [Suspect]
     Active Substance: OFATUMUMAB
     Indication: Relapsing multiple sclerosis
     Dosage: 20 MG, QMO
     Route: 058
     Dates: start: 20240827

REACTIONS (6)
  - Rash [Unknown]
  - Influenza like illness [Unknown]
  - Pyrexia [Unknown]
  - Influenza [Recovered/Resolved]
  - Diarrhoea [Unknown]
  - Feeling drunk [Unknown]
